FAERS Safety Report 5855917-8 (Version None)
Quarter: 2008Q3

REPORT INFORMATION
  Report Type: 
  Country: None (occurrence: None)
  Receive Date: 20080821
  Receipt Date: 20080821
  Transmission Date: 20090109
  Serious: Yes (Life-Threatening)
  Sender: FDA-Public Use
  Company Number: None

PATIENT
  Age: 61 Year
  Sex: Female
  Weight: 98.4306 kg

DRUGS (8)
  1. METHOTREXATE [Suspect]
     Indication: PSORIASIS
     Dosage: 20 MG -8 PILLS- ONCE A WEEK PO
     Route: 048
  2. METHOTREXATE [Suspect]
     Indication: RHEUMATOID ARTHRITIS
     Dosage: 20 MG -8 PILLS- ONCE A WEEK PO
     Route: 048
  3. PLAQUENIL [Concomitant]
  4. FOLIC ACID [Concomitant]
  5. PROZAC [Concomitant]
  6. ATENOLOL [Concomitant]
  7. TRIAMTERINE [Concomitant]
  8. DESYREL [Concomitant]

REACTIONS (2)
  - IMMUNOSUPPRESSION [None]
  - MALIGNANT MELANOMA [None]
